FAERS Safety Report 26027097 (Version 3)
Quarter: 2025Q4

REPORT INFORMATION
  Report Type: Report from Study
  Country: US (occurrence: US)
  Receive Date: 20251111
  Receipt Date: 20251124
  Transmission Date: 20260117
  Serious: No
  Sender: MALLINCKRODT
  Company Number: US-MALLINCKRODT-MNK202506923

PATIENT
  Age: 5 Month
  Sex: Male
  Weight: 7 kg

DRUGS (1)
  1. CORTICOTROPIN [Suspect]
     Active Substance: CORTICOTROPIN
     Indication: Infantile spasms
     Route: 030
     Dates: start: 20251030

REACTIONS (10)
  - Screaming [Unknown]
  - Pain [Unknown]
  - Restlessness [Unknown]
  - Constipation [Not Recovered/Not Resolved]
  - Insomnia [Unknown]
  - Irritability [Recovering/Resolving]
  - Increased appetite [Not Recovered/Not Resolved]
  - Gastrointestinal infection [Unknown]
  - Underdose [Unknown]
  - Wrong technique in product usage process [Unknown]

NARRATIVE: CASE EVENT DATE: 20250101
